FAERS Safety Report 5677867-2 (Version None)
Quarter: 2008Q1

REPORT INFORMATION
  Report Type: 
  Country: None (occurrence: None)
  Receive Date: 20080319
  Receipt Date: 20080313
  Transmission Date: 20080703
  Serious: Yes (Other)
  Sender: FDA-Public Use
  Company Number: CHPA2008US04622

PATIENT
  Age: 90 Year
  Sex: Male

DRUGS (1)
  1. GAS-X EXTRA STRENGTH SOFTGELS (NCH) (SIMETHICONE) SOFT GELATION CAPSUL [Suspect]
     Indication: FLATULENCE
     Dosage: 125 MG, ONCE OR TWICE A DAY, ORAL
     Route: 048

REACTIONS (2)
  - BLOOD PRESSURE INCREASED [None]
  - JOINT SWELLING [None]
